FAERS Safety Report 11643946 (Version 1)
Quarter: 2015Q4

REPORT INFORMATION
  Report Type: Spontaneous
  Country: US (occurrence: None)
  Receive Date: 20151019
  Receipt Date: 20151019
  Transmission Date: 20160304
  Serious: Yes (Hospitalization)
  Sender: FDA-Public Use
  Company Number: None

PATIENT
  Age: 56 Year
  Sex: Female
  Weight: 165.56 kg

DRUGS (4)
  1. ZOFRAN [Suspect]
     Active Substance: ONDANSETRON HYDROCHLORIDE
     Indication: VOMITING
     Route: 042
  2. LASIX [Concomitant]
     Active Substance: FUROSEMIDE
  3. KCL [Concomitant]
     Active Substance: POTASSIUM CHLORIDE
  4. ZOFRAN [Suspect]
     Active Substance: ONDANSETRON HYDROCHLORIDE
     Indication: NAUSEA
     Route: 042

REACTIONS (4)
  - Dizziness [None]
  - Eye disorder [None]
  - Feeling abnormal [None]
  - Apparent death [None]

NARRATIVE: CASE EVENT DATE: 20151013
